FAERS Safety Report 22647081 (Version 1)
Quarter: 2023Q2

REPORT INFORMATION
  Report Type: Report from Study
  Country: FR (occurrence: FR)
  Receive Date: 20230627
  Receipt Date: 20230627
  Transmission Date: 20230721
  Serious: Yes (Hospitalization)
  Sender: FDA-Public Use
  Company Number: FR-BAYER-2023A087708

PATIENT
  Age: 68 Year
  Sex: Female
  Weight: 44 kg

DRUGS (3)
  1. REGORAFENIB [Suspect]
     Active Substance: REGORAFENIB
     Indication: Metastatic neoplasm
     Dosage: 160 MG - 3 WEEKS ON / 1 WEEK OFF
     Route: 048
     Dates: start: 20230517, end: 20230531
  2. REGORAFENIB [Suspect]
     Active Substance: REGORAFENIB
     Indication: Metastasis
     Dosage: 120 MG - DAILY 3 WEEKS ON / 1 WEEK OFF
     Route: 048
     Dates: start: 20230601, end: 20230620
  3. DAFALGAN [Concomitant]
     Active Substance: ACETAMINOPHEN
     Indication: Arthralgia
     Dosage: 1 G
     Route: 048

REACTIONS (1)
  - Pulmonary embolism [Not Recovered/Not Resolved]

NARRATIVE: CASE EVENT DATE: 20230618
